FAERS Safety Report 5132664-1 (Version None)
Quarter: 2006Q4

REPORT INFORMATION
  Report Type: 
  Country: None (occurrence: None)
  Receive Date: 20061019
  Receipt Date: 20061019
  Transmission Date: 20070319
  Serious: Yes (Life-Threatening, Hospitalization)
  Sender: FDA-Public Use
  Company Number: None

PATIENT
  Age: 81 Year
  Sex: Female

DRUGS (3)
  1. GEMZAR [Suspect]
     Indication: PANCREATIC CARCINOMA
     Dosage: 900 MG WEEKLY IV DRIP
     Route: 041
     Dates: start: 20060725, end: 20061017
  2. TAXOTERE [Suspect]
     Indication: PANCREATIC CARCINOMA
     Dosage: 60 MG WEEKLY IV DRIP
     Route: 041
     Dates: start: 20060725, end: 20061017
  3. XELODA [Suspect]
     Indication: PANCREATIC CARCINOMA
     Dosage: 1500 MG/M2 DAILY PO
     Route: 048
     Dates: start: 20060725, end: 20061017

REACTIONS (4)
  - HYPERCOAGULATION [None]
  - HYPOXIA [None]
  - PALPITATIONS [None]
  - PULMONARY EMBOLISM [None]
